FAERS Safety Report 15029391 (Version 3)
Quarter: 2019Q2

REPORT INFORMATION
  Report Type: Spontaneous
  Country: JP (occurrence: JP)
  Receive Date: 20180619
  Receipt Date: 20190403
  Transmission Date: 20190711
  Serious: Yes (Other)
  Sender: FDA-Public Use
  Company Number: PHJP2018JP012666

PATIENT
  Age: 66 Year
  Sex: Male

DRUGS (3)
  1. CARTEOLOL [Concomitant]
     Active Substance: CARTEOLOL
     Indication: GLAUCOMA
     Dosage: UNK, QD
     Route: 047
  2. AZOPT [Suspect]
     Active Substance: BRINZOLAMIDE
     Indication: GLAUCOMA
     Dosage: UNK, BID
     Route: 047
  3. LATANOPROST. [Concomitant]
     Active Substance: LATANOPROST
     Indication: GLAUCOMA
     Dosage: UNK, QD
     Route: 047

REACTIONS (2)
  - Therapeutic product effect incomplete [Unknown]
  - Macular fibrosis [Not Recovered/Not Resolved]
